FAERS Safety Report 5312336-0 (Version None)
Quarter: 2007Q2

REPORT INFORMATION
  Report Type: 
  Country: None (occurrence: None)
  Receive Date: 20070430
  Receipt Date: 20070425
  Transmission Date: 20071010
  Serious: Yes (Other)
  Sender: FDA-Public Use
  Company Number: US-MERCK-0701USA04065

PATIENT
  Age: 54 Year
  Sex: Female
  Weight: 105 kg

DRUGS (6)
  1. JANUVIA [Suspect]
     Indication: DIABETES MELLITUS NON-INSULIN-DEPENDENT
     Route: 048
     Dates: start: 20070118, end: 20070120
  2. ZOCOR [Concomitant]
     Route: 048
  3. COZAAR [Concomitant]
     Route: 048
  4. METFORMIN [Concomitant]
     Route: 048
  5. GLIPIZIDE [Concomitant]
     Route: 048
  6. LANTUS [Concomitant]
     Route: 065

REACTIONS (3)
  - ABDOMINAL PAIN UPPER [None]
  - HAEMATURIA [None]
  - MALAISE [None]
